FAERS Safety Report 20279001 (Version 1)
Quarter: 2022Q1

REPORT INFORMATION
  Report Type: Spontaneous
  Country: US (occurrence: US)
  Receive Date: 20220103
  Receipt Date: 20220103
  Transmission Date: 20220423
  Serious: Yes (Other)
  Sender: FDA-Public Use
  Company Number: US-drreddys-SPO/USA/21/0145320

PATIENT
  Age: 28 Year
  Sex: Female

DRUGS (1)
  1. ZENATANE [Suspect]
     Active Substance: ISOTRETINOIN
     Indication: Acne
     Dates: start: 202110

REACTIONS (7)
  - Mood swings [Unknown]
  - Abdominal distension [Unknown]
  - Appetite disorder [Unknown]
  - Disease recurrence [Unknown]
  - Alopecia [Unknown]
  - Product dose omission issue [Unknown]
  - Product administration interrupted [Unknown]
